FAERS Safety Report 4981417-3 (Version None)
Quarter: 2006Q2

REPORT INFORMATION
  Report Type: 
  Country: None (occurrence: None)
  Receive Date: 20060424
  Receipt Date: 20060414
  Transmission Date: 20061013
  Serious: Yes (Disabling)
  Sender: FDA-Public Use
  Company Number: FR-MERCK-0604FRA00048

PATIENT
  Age: 44 Year
  Sex: Male

DRUGS (2)
  1. NOROXIN [Suspect]
     Indication: CAMPYLOBACTER INTESTINAL INFECTION
     Route: 048
     Dates: start: 20060410, end: 20060412
  2. NOROXIN [Suspect]
     Route: 048
     Dates: start: 20060413, end: 20060413

REACTIONS (2)
  - DIARRHOEA [None]
  - MUSCLE INJURY [None]
